FAERS Safety Report 4899778-2 (Version None)
Quarter: 2006Q1

REPORT INFORMATION
  Report Type: 
  Country: None (occurrence: None)
  Receive Date: 20060113
  Receipt Date: 20051013
  Transmission Date: 20060701
  Serious: No
  Sender: FDA-Public Use
  Company Number: 2005SP003444

PATIENT
  Age: 50 Year
  Sex: Female

DRUGS (8)
  1. LUNESTA [Suspect]
     Indication: INSOMNIA
     Dosage: 2MG;1X;ORAL
     Route: 048
     Dates: start: 20050913, end: 20050913
  2. LORTAB [Concomitant]
  3. SIMVASTATIN [Concomitant]
  4. PLAVIX [Concomitant]
  5. TOPROL-XL [Concomitant]
  6. LEXAPRO [Concomitant]
  7. CELEBREX [Concomitant]
  8. NEURONTIN [Concomitant]

REACTIONS (2)
  - DYSGEUSIA [None]
  - HYPERSENSITIVITY [None]
